FAERS Safety Report 5394696-8 (Version None)
Quarter: 2007Q3

REPORT INFORMATION
  Report Type: 
  Country: None (occurrence: None)
  Receive Date: 20070723
  Receipt Date: 20070702
  Transmission Date: 20080115
  Serious: Yes (Hospitalization, Other)
  Sender: FDA-Public Use
  Company Number: US-PFIZER INC-2006118724

PATIENT
  Sex: Female
  Weight: 95.3 kg

DRUGS (9)
  1. BEXTRA [Suspect]
     Indication: PAIN
  2. CELEBREX [Suspect]
     Indication: PAIN
     Dates: start: 20000105
  3. VIOXX [Suspect]
     Indication: PAIN
     Dates: start: 19990601, end: 20020801
  4. ACETAMINOPHEN W/ CODEINE [Concomitant]
     Dates: start: 20000113, end: 20060501
  5. BUTALBITAL [Concomitant]
     Dates: start: 20020712, end: 20020901
  6. IBUPROFEN [Concomitant]
     Dates: start: 20000404, end: 20050601
  7. PREDNISONE [Concomitant]
     Dates: start: 19990422, end: 20060101
  8. PROPOXYPHENE HYDROCHLORIDE [Concomitant]
     Dates: start: 20020711, end: 20030601
  9. VALSARTAN [Concomitant]
     Dates: start: 20020712

REACTIONS (2)
  - AMNESIA [None]
  - CEREBROVASCULAR ACCIDENT [None]
